FAERS Safety Report 4658163-9 (Version None)
Quarter: 2005Q2

REPORT INFORMATION
  Report Type: 
  Country: None (occurrence: None)
  Receive Date: 20050509
  Receipt Date: 20050426
  Transmission Date: 20051028
  Serious: Yes (Other)
  Sender: FDA-Public Use
  Company Number: 2005065771

PATIENT
  Age: 85 Year
  Sex: Female
  Weight: 81.6475 kg

DRUGS (1)
  1. CELEBREX [Suspect]
     Indication: ARTHRITIS
     Dosage: 200 MG (100 MG, 2 IN 1 D), ORAL
     Route: 048
     Dates: start: 20030101

REACTIONS (4)
  - ASTHMA [None]
  - BRONCHITIS [None]
  - CARDIOMEGALY [None]
  - PALPITATIONS [None]
